FAERS Safety Report 25170090 (Version 14)
Quarter: 2025Q4

REPORT INFORMATION
  Report Type: Report from Study
  Country: EU (occurrence: EU)
  Receive Date: 20250407
  Receipt Date: 20251117
  Transmission Date: 20260118
  Serious: Yes (Hospitalization)
  Sender: ABBVIE
  Company Number: EU-JNJFOC-20250387271

PATIENT
  Age: 64 Year
  Sex: Male
  Weight: 71 kg

DRUGS (60)
  1. IBRUTINIB [Suspect]
     Active Substance: IBRUTINIB
     Indication: Chronic lymphocytic leukaemia
     Route: 048
     Dates: start: 20250313, end: 20250327
  2. IBRUTINIB [Suspect]
     Active Substance: IBRUTINIB
     Indication: Chronic lymphocytic leukaemia
     Route: 048
     Dates: start: 20250410, end: 20250507
  3. IBRUTINIB [Suspect]
     Active Substance: IBRUTINIB
     Indication: Chronic lymphocytic leukaemia
     Route: 048
     Dates: start: 20250606, end: 20250704
  4. IBRUTINIB [Suspect]
     Active Substance: IBRUTINIB
     Indication: Chronic lymphocytic leukaemia
     Route: 048
     Dates: start: 20250709
  5. IBRUTINIB [Suspect]
     Active Substance: IBRUTINIB
     Indication: Chronic lymphocytic leukaemia
     Dosage: LAST ADMIN-JUL 2025
     Route: 048
     Dates: start: 20250705
  6. IBRUTINIB [Suspect]
     Active Substance: IBRUTINIB
     Indication: Chronic lymphocytic leukaemia
     Route: 048
     Dates: start: 20250508, end: 20250605
  7. IBRUTINIB [Suspect]
     Active Substance: IBRUTINIB
     Indication: Chronic lymphocytic leukaemia
     Route: 048
     Dates: start: 20250802, end: 20250829
  8. IBRUTINIB [Suspect]
     Active Substance: IBRUTINIB
     Indication: Chronic lymphocytic leukaemia
     Route: 048
     Dates: start: 20250328, end: 20250409
  9. IBRUTINIB [Suspect]
     Active Substance: IBRUTINIB
     Indication: Chronic lymphocytic leukaemia
     Dosage: LAST ADMIN DATE: 2025
     Route: 048
     Dates: start: 20250830
  10. NALOXONE HYDROCHLORIDE\OXYCODONE HYDROCHLORIDE [Concomitant]
     Active Substance: NALOXONE HYDROCHLORIDE\OXYCODONE HYDROCHLORIDE
     Indication: Product used for unknown indication
     Dosage: DAILY, OXICODONE 5 MG + NALOXONE 2.5 MG
     Route: 048
  11. CEFOTAXIME [Concomitant]
     Active Substance: CEFOTAXIME SODIUM
     Indication: Atrial fibrillation
     Dosage: DAILY
     Route: 042
     Dates: start: 20250403
  12. PREDNISONE [Concomitant]
     Active Substance: PREDNISONE
     Indication: Product used for unknown indication
     Route: 048
  13. PREDNISONE [Concomitant]
     Active Substance: PREDNISONE
     Indication: Product used for unknown indication
     Route: 048
  14. PREDNISONE [Concomitant]
     Active Substance: PREDNISONE
     Indication: Product used for unknown indication
     Dosage: DAILY
     Route: 048
  15. PREDNISONE [Concomitant]
     Active Substance: PREDNISONE
     Indication: Product used for unknown indication
     Route: 048
  16. ALLOPURINOL [Concomitant]
     Active Substance: ALLOPURINOL
     Indication: Unevaluable event
     Route: 048
     Dates: start: 20250312
  17. CEFTRIAXONE [Concomitant]
     Active Substance: CEFTRIAXONE
     Indication: Atrial fibrillation
     Dosage: DAILY
     Route: 042
     Dates: start: 20250325
  18. HYDROCHLOROTHIAZIDE\OLMESARTAN MEDOXOMIL [Concomitant]
     Active Substance: HYDROCHLOROTHIAZIDE\OLMESARTAN MEDOXOMIL
     Indication: Hypertension
     Dosage: TIME INTERVAL: AS NECESSARY: AS NECESSARY
     Route: 048
     Dates: start: 20250314, end: 20250314
  19. ETORICOXIB [Concomitant]
     Active Substance: ETORICOXIB
     Indication: Unevaluable event
     Route: 048
  20. ETORICOXIB [Concomitant]
     Active Substance: ETORICOXIB
     Indication: Unevaluable event
     Route: 048
  21. ETORICOXIB [Concomitant]
     Active Substance: ETORICOXIB
     Indication: Unevaluable event
     Route: 048
  22. ETORICOXIB [Concomitant]
     Active Substance: ETORICOXIB
     Indication: Unevaluable event
     Route: 048
  23. ATORVASTATIN [Concomitant]
     Active Substance: ATORVASTATIN
     Indication: Hypertension
     Route: 048
  24. ATORVASTATIN [Concomitant]
     Active Substance: ATORVASTATIN
     Indication: Hypertension
     Route: 048
  25. ATORVASTATIN [Concomitant]
     Active Substance: ATORVASTATIN
     Indication: Hypertension
     Route: 048
  26. ATORVASTATIN [Concomitant]
     Active Substance: ATORVASTATIN
     Indication: Hypertension
     Route: 048
  27. MAGNESIUM PIDOLATE [Concomitant]
     Active Substance: MAGNESIUM PIDOLATE
     Indication: Unevaluable event
     Route: 048
  28. MAGNESIUM PIDOLATE [Concomitant]
     Active Substance: MAGNESIUM PIDOLATE
     Indication: Unevaluable event
     Route: 048
  29. MAGNESIUM PIDOLATE [Concomitant]
     Active Substance: MAGNESIUM PIDOLATE
     Indication: Unevaluable event
     Route: 048
  30. MAGNESIUM PIDOLATE [Concomitant]
     Active Substance: MAGNESIUM PIDOLATE
     Indication: Unevaluable event
     Route: 048
  31. DICLOFENAC [Concomitant]
     Active Substance: DICLOFENAC
     Indication: Unevaluable event
     Dosage: TIME INTERVAL: AS NECESSARY
     Route: 042
     Dates: end: 20250312
  32. DELORAZEPAM [Concomitant]
     Active Substance: DELORAZEPAM
     Indication: Unevaluable event
     Route: 048
  33. DELORAZEPAM [Concomitant]
     Active Substance: DELORAZEPAM
     Indication: Unevaluable event
     Route: 048
  34. DELORAZEPAM [Concomitant]
     Active Substance: DELORAZEPAM
     Indication: Unevaluable event
     Route: 048
  35. DELORAZEPAM [Concomitant]
     Active Substance: DELORAZEPAM
     Indication: Unevaluable event
     Route: 048
  36. THIOCOLCHICOSIDE [Concomitant]
     Active Substance: THIOCOLCHICOSIDE
     Indication: Unevaluable event
     Route: 030
  37. THIOCOLCHICOSIDE [Concomitant]
     Active Substance: THIOCOLCHICOSIDE
     Indication: Unevaluable event
     Route: 030
  38. THIOCOLCHICOSIDE [Concomitant]
     Active Substance: THIOCOLCHICOSIDE
     Indication: Unevaluable event
     Route: 030
  39. THIOCOLCHICOSIDE [Concomitant]
     Active Substance: THIOCOLCHICOSIDE
     Indication: Unevaluable event
     Route: 030
  40. DEXAMETHASONE [Concomitant]
     Active Substance: DEXAMETHASONE
     Indication: Unevaluable event
     Dosage: INFREQUENT
     Route: 030
     Dates: start: 20250319, end: 20250324
  41. OMEPRAZOLE [Concomitant]
     Active Substance: OMEPRAZOLE
     Indication: Prophylaxis
     Dosage: DAILY
     Route: 048
     Dates: end: 20250402
  42. OMEPRAZOLE [Concomitant]
     Active Substance: OMEPRAZOLE
     Indication: Prophylaxis
     Route: 048
  43. TRAMADOL [Concomitant]
     Active Substance: TRAMADOL
     Indication: Unevaluable event
     Dosage: TIME INTERVAL: AS NECESSARY: AS NECESSARY
     Route: 048
  44. TRAMADOL [Concomitant]
     Active Substance: TRAMADOL
     Indication: Unevaluable event
     Dosage: TIME INTERVAL: AS NECESSARY: AS NECESSARY
     Route: 048
  45. TRAMADOL [Concomitant]
     Active Substance: TRAMADOL
     Indication: Unevaluable event
     Dosage: TIME INTERVAL: AS NECESSARY: AS NECESSARY
     Route: 048
  46. TRAMADOL [Concomitant]
     Active Substance: TRAMADOL
     Indication: Unevaluable event
     Dosage: TIME INTERVAL: AS NECESSARY
     Route: 048
  47. NEBIVOLOL [Concomitant]
     Active Substance: NEBIVOLOL
     Indication: Hypertension
     Dosage: DAILY
     Route: 048
  48. NEBIVOLOL [Concomitant]
     Active Substance: NEBIVOLOL
     Indication: Hypertension
     Route: 048
  49. NEBIVOLOL [Concomitant]
     Active Substance: NEBIVOLOL
     Indication: Hypertension
     Route: 048
  50. NEBIVOLOL [Concomitant]
     Active Substance: NEBIVOLOL
     Indication: Hypertension
     Route: 048
  51. WARFARIN [Concomitant]
     Active Substance: WARFARIN
     Indication: Atrial fibrillation
     Route: 048
     Dates: start: 20250403, end: 20250706
  52. PANTOPRAZOLE [Concomitant]
     Active Substance: PANTOPRAZOLE
     Indication: Prophylaxis
     Route: 048
     Dates: start: 20250403
  53. VENETOCLAX [Suspect]
     Active Substance: VENETOCLAX
     Indication: Chronic lymphocytic leukaemia
     Route: 048
     Dates: start: 20250705, end: 20250801
  54. VENETOCLAX [Suspect]
     Active Substance: VENETOCLAX
     Indication: Chronic lymphocytic leukaemia
     Route: 048
     Dates: start: 20250606, end: 20250704
  55. VENETOCLAX [Suspect]
     Active Substance: VENETOCLAX
     Indication: Chronic lymphocytic leukaemia
     Route: 048
     Dates: start: 20250830
  56. VENETOCLAX [Suspect]
     Active Substance: VENETOCLAX
     Indication: Chronic lymphocytic leukaemia
     Route: 048
     Dates: start: 20250802, end: 20250829
  57. VENETOCLAX [Suspect]
     Active Substance: VENETOCLAX
     Indication: Chronic lymphocytic leukaemia
     Dosage: LAST ADMIN- 2025
     Route: 050
     Dates: start: 20250709
  58. OLMESARTAN [Concomitant]
     Active Substance: OLMESARTAN
     Indication: Hypertension
     Dosage: TIME INTERVAL: AS NECESSARY: AS NECESSARY
     Route: 048
     Dates: start: 20250314, end: 20250314
  59. Dihydrocodeine thiocyanate;Pentetrazol [Concomitant]
     Indication: Product used for unknown indication
     Dosage: FREQ:ONCE
     Route: 048
     Dates: start: 20250403, end: 20250403
  60. ENOXAPARIN SODIUM [Concomitant]
     Active Substance: ENOXAPARIN SODIUM
     Indication: Adverse event
     Route: 058
     Dates: start: 20250403

REACTIONS (3)
  - Atrial fibrillation [Recovered/Resolved]
  - Endocarditis [Recovered/Resolved]
  - Heart valve replacement [Recovered/Resolved]

NARRATIVE: CASE EVENT DATE: 20250324
